FAERS Safety Report 6437432-6 (Version None)
Quarter: 2009Q4

REPORT INFORMATION
  Report Type: 
  Country: None (occurrence: None)
  Receive Date: 20091112
  Receipt Date: 20081003
  Transmission Date: 20100525
  Serious: No
  Sender: FDA-Public Use
  Company Number: US-ASTRAZENECA-2009UW15390

PATIENT
  Age: 87 Year
  Sex: Male
  Weight: 68 kg

DRUGS (2)
  1. PRILOSEC OTC [Suspect]
     Dosage: 1 TABLET, 1 /DAY FOR 60 DAYS
     Route: 048
     Dates: start: 20080803, end: 20081003
  2. FINASTERIDE [Suspect]
     Route: 048

REACTIONS (1)
  - RASH [None]
